FAERS Safety Report 13174694 (Version 1)
Quarter: 2017Q1

REPORT INFORMATION
  Report Type: Spontaneous
  Country: US (occurrence: US)
  Receive Date: 20170201
  Receipt Date: 20170201
  Transmission Date: 20170428
  Serious: Yes (Other)
  Sender: FDA-Public Use
  Company Number: US-ABBVIE-16K-163-1820394-00

PATIENT
  Age: 30 Year
  Sex: Male

DRUGS (1)
  1. HUMIRA [Suspect]
     Active Substance: ADALIMUMAB
     Indication: PSORIASIS
     Route: 058
     Dates: start: 2014, end: 2016

REACTIONS (3)
  - Arthralgia [Recovering/Resolving]
  - Lupus-like syndrome [Recovering/Resolving]
  - Antinuclear antibody increased [Unknown]

NARRATIVE: CASE EVENT DATE: 2016
